FAERS Safety Report 5338431-8 (Version None)
Quarter: 2007Q2

REPORT INFORMATION
  Report Type: 
  Country: None (occurrence: None)
  Receive Date: 20070530
  Receipt Date: 20070526
  Transmission Date: 20071010
  Serious: Yes (Other)
  Sender: FDA-Public Use
  Company Number: PT-BRISTOL-MYERS SQUIBB COMPANY-13794664

PATIENT
  Sex: Female

DRUGS (1)
  1. DASATINIB [Suspect]
     Dates: start: 20070101

REACTIONS (1)
  - UVEITIS [None]
